FAERS Safety Report 13244171 (Version 1)
Quarter: 2017Q1

REPORT INFORMATION
  Report Type: Spontaneous
  Country: US (occurrence: US)
  Receive Date: 20170217
  Receipt Date: 20170217
  Transmission Date: 20170428
  Serious: Yes (Hospitalization)
  Sender: FDA-Public Use
  Company Number: None

PATIENT
  Age: 46 Year
  Sex: Female

DRUGS (3)
  1. POLY VI SOL [Concomitant]
  2. CAPECITABINE 500MG [Suspect]
     Active Substance: CAPECITABINE
     Indication: PREMATURE BABY
     Route: 048
     Dates: start: 20161011
  3. DIURIL [Concomitant]
     Active Substance: CHLOROTHIAZIDE

REACTIONS (2)
  - Pain [None]
  - Haemorrhage [None]

NARRATIVE: CASE EVENT DATE: 20161230
